FAERS Safety Report 14867916 (Version 1)
Quarter: 2018Q2

REPORT INFORMATION
  Report Type: Spontaneous
  Country: IT (occurrence: IT)
  Receive Date: 20180509
  Receipt Date: 20180509
  Transmission Date: 20180711
  Serious: Yes (Other)
  Sender: FDA-Public Use
  Company Number: IT-TEVA-2018-IT-890729

PATIENT
  Age: 20 Year
  Sex: Female

DRUGS (2)
  1. FLUIMUCIL [Suspect]
     Active Substance: ACETYLCYSTEINE
     Indication: INFLUENZA
     Dosage: 1 DOSAGE FORMS DAILY;
     Route: 048
  2. AMOXICILLINA/ACIDO CLAVULANICO [Suspect]
     Active Substance: AMOXICILLIN\CLAVULANIC ACID
     Indication: INFLUENZA
     Dosage: 2 DOSAGE FORMS DAILY;
     Route: 048

REACTIONS (2)
  - Erythema [Recovering/Resolving]
  - Pruritus generalised [Recovering/Resolving]
